FAERS Safety Report 6234961-5 (Version None)
Quarter: 2009Q2

REPORT INFORMATION
  Report Type: 
  Country: None (occurrence: None)
  Receive Date: 20090618
  Receipt Date: 20090609
  Transmission Date: 20091009
  Serious: Yes (Disabling)
  Sender: FDA-Public Use
  Company Number: D0061557A

PATIENT
  Sex: Female
  Weight: 62 kg

DRUGS (1)
  1. VALTREX [Suspect]
     Indication: HERPES VIRUS INFECTION
     Dosage: 500MG VARIABLE DOSE
     Route: 048
     Dates: start: 20070601

REACTIONS (10)
  - AORTIC ARTERIOSCLEROSIS [None]
  - ASCITES [None]
  - DIAPHRAGMATIC DISORDER [None]
  - EFFUSION [None]
  - INDURATION [None]
  - INGUINAL HERNIA [None]
  - LIVER DISORDER [None]
  - PLEURAL EFFUSION [None]
  - SCOLIOSIS [None]
  - SPINAL OSTEOARTHRITIS [None]
